FAERS Safety Report 4826601-4 (Version None)
Quarter: 2005Q4

REPORT INFORMATION
  Report Type: 
  Country: None (occurrence: None)
  Receive Date: 20051014
  Receipt Date: 20050819
  Transmission Date: 20060501
  Serious: No
  Sender: FDA-Public Use
  Company Number: 2005SP002432

PATIENT
  Age: 65 Year
  Sex: Female
  Weight: 87.5442 kg

DRUGS (7)
  1. LUNESTA [Suspect]
     Indication: INSOMNIA
     Dosage: 2MG;HS; ORAL
     Route: 048
     Dates: start: 20050816, end: 20050818
  2. LISINOPRIL [Concomitant]
  3. NORVASC [Concomitant]
  4. ATENOLOL [Concomitant]
  5. CLONIDINE [Concomitant]
  6. VYTORIN [Concomitant]
  7. ALPRAZOLAM [Concomitant]

REACTIONS (3)
  - DRUG INEFFECTIVE [None]
  - HALLUCINATION, AUDITORY [None]
  - MIDDLE INSOMNIA [None]
